FAERS Safety Report 5880275-2 (Version None)
Quarter: 2008Q3

REPORT INFORMATION
  Report Type: 
  Country: None (occurrence: None)
  Receive Date: 20080912
  Receipt Date: 20080904
  Transmission Date: 20090109
  Serious: Yes (Other)
  Sender: FDA-Public Use
  Company Number: PHHY2008JP14391

PATIENT
  Sex: Female
  Weight: 41 kg

DRUGS (6)
  1. VOLTAREN [Suspect]
     Indication: PAIN
     Dosage: 25 MG, UNK
     Route: 054
     Dates: start: 20070723, end: 20070727
  2. LOXOPROFEN SODIUM [Suspect]
     Indication: PAIN
     Dosage: 120 MG/DAY
     Route: 048
     Dates: start: 20070723, end: 20070727
  3. LENDORMIN [Concomitant]
     Indication: INITIAL INSOMNIA
     Dosage: 0.25 MG/DAY
     Route: 048
     Dates: start: 20070723
  4. ACARDI [Concomitant]
     Indication: CARDIAC FAILURE
     Dosage: 1.25 MG/DAY
     Route: 048
     Dates: start: 20070723
  5. LASIX [Concomitant]
     Indication: RENAL FAILURE
     Dosage: 20 MG/DAY
     Route: 048
     Dates: start: 20070723
  6. NEOPHAGEN [Concomitant]
     Indication: HEPATIC FAILURE
     Dosage: 80ML
     Dates: start: 20070725, end: 20070729

REACTIONS (5)
  - ANAESTHETIC COMPLICATION [None]
  - BLOOD PRESSURE DECREASED [None]
  - JOINT ARTHROPLASTY [None]
  - NERVE BLOCK [None]
  - RENAL IMPAIRMENT [None]
